FAERS Safety Report 10224766 (Version 1)
Quarter: 2014Q2

REPORT INFORMATION
  Report Type: Report from Study
  Country: ES (occurrence: ES)
  Receive Date: 20140609
  Receipt Date: 20140609
  Transmission Date: 20141212
  Serious: Yes (Hospitalization)
  Sender: FDA-Public Use
  Company Number: ES-GLAXOSMITHKLINE-B1001765A

PATIENT
  Age: 54 Year
  Sex: Male

DRUGS (7)
  1. OFATUMUMAB [Suspect]
     Indication: NON-HODGKIN^S LYMPHOMA
  2. OMEPRAZOLE [Concomitant]
     Dosage: 20MG PER DAY
     Route: 048
  3. BECLOMETASONE [Concomitant]
     Dosage: 8MG PER DAY
     Route: 048
  4. BUDESONIDE [Concomitant]
     Dosage: 9MG PER DAY
     Route: 048
  5. RAPAMYCIN [Concomitant]
     Route: 048
  6. TACROLIMUS [Concomitant]
     Dosage: 12MG PER DAY
     Route: 048
  7. BROMAZEPAM [Concomitant]
     Dosage: 3MG PER DAY
     Route: 048

REACTIONS (1)
  - Febrile neutropenia [Recovered/Resolved]
